FAERS Safety Report 7040919-9 (Version None)
Quarter: 2010Q4

REPORT INFORMATION
  Report Type: 
  Country: None (occurrence: None)
  Receive Date: 20101013
  Receipt Date: 20101001
  Transmission Date: 20110411
  Serious: Yes (Hospitalization, Other)
  Sender: FDA-Public Use
  Company Number: JP-JNJFOC-20101001370

PATIENT
  Age: 15 Year
  Sex: Female
  Weight: 31 kg

DRUGS (22)
  1. REMICADE [Suspect]
     Indication: FISTULA
     Route: 042
  2. REMICADE [Suspect]
     Route: 042
  3. REMICADE [Suspect]
     Route: 042
  4. REMICADE [Suspect]
     Route: 042
  5. REMICADE [Suspect]
     Route: 042
  6. REMICADE [Suspect]
     Route: 042
  7. REMICADE [Suspect]
     Route: 042
  8. REMICADE [Suspect]
     Route: 042
  9. REMICADE [Suspect]
     Indication: CROHN'S DISEASE
     Route: 042
  10. REMICADE [Suspect]
     Route: 042
  11. REMICADE [Suspect]
     Route: 042
  12. REMICADE [Suspect]
     Route: 042
  13. REMICADE [Suspect]
     Route: 042
  14. REMICADE [Suspect]
     Route: 042
  15. REMICADE [Suspect]
     Route: 042
  16. REMICADE [Suspect]
     Route: 042
  17. PENTASA [Suspect]
     Indication: CROHN'S DISEASE
     Route: 048
  18. ANTIHISTAMINES [Concomitant]
     Indication: PROPHYLAXIS
  19. ANTIHISTAMINES [Concomitant]
  20. ANTIHISTAMINES [Concomitant]
  21. URSO 250 [Concomitant]
     Indication: HEPATIC FUNCTION ABNORMAL
  22. STEROIDS NOS [Concomitant]
     Indication: PROPHYLAXIS
     Route: 048

REACTIONS (5)
  - BLOOD CREATINE PHOSPHOKINASE INCREASED [None]
  - IRON DEFICIENCY ANAEMIA [None]
  - LYMPHOCYTE STIMULATION TEST POSITIVE [None]
  - MYALGIA [None]
  - PANCREATITIS ACUTE [None]
